FAERS Safety Report 5656763-0 (Version None)
Quarter: 2008Q1

REPORT INFORMATION
  Report Type: 
  Country: None (occurrence: None)
  Receive Date: 20080310
  Receipt Date: 20080305
  Transmission Date: 20080703
  Serious: Yes (Hospitalization)
  Sender: FDA-Public Use
  Company Number: MY-ASTRAZENECA-2008AP01084

PATIENT
  Age: 25220 Day
  Sex: Male

DRUGS (17)
  1. IRESSA [Suspect]
     Indication: NON-SMALL CELL LUNG CANCER
     Route: 048
     Dates: start: 20070801
  2. NEXIUM [Concomitant]
     Indication: PROPHYLAXIS
     Route: 048
     Dates: start: 20070101
  3. CARDIPRIN [Concomitant]
     Indication: MYOCARDIAL ISCHAEMIA
     Route: 048
     Dates: start: 19980101
  4. ATENOLOL [Concomitant]
     Indication: MYOCARDIAL ISCHAEMIA
     Route: 048
     Dates: start: 19980101
  5. ZOCOR [Concomitant]
     Indication: MYOCARDIAL ISCHAEMIA
     Route: 048
     Dates: start: 19980101
  6. MOBIC [Concomitant]
     Indication: PAIN
     Route: 048
     Dates: start: 20070401
  7. IMODIUM [Concomitant]
     Indication: DIARRHOEA
     Route: 048
     Dates: start: 20070808, end: 20070813
  8. BONJELA [Concomitant]
     Indication: MUCOSAL INFLAMMATION
     Dates: start: 20070808, end: 20070822
  9. SODIUM BICARBONATE [Concomitant]
     Indication: MUCOSAL INFLAMMATION
     Dates: start: 20070815, end: 20070822
  10. DIFFLAM [Concomitant]
     Indication: MUCOSAL INFLAMMATION
     Dates: start: 20070815, end: 20070822
  11. XANAX [Concomitant]
     Indication: ANXIETY
     Route: 048
     Dates: start: 20070912
  12. SKIN EMOLLIENT [Concomitant]
     Indication: DRY SKIN
     Dates: start: 20070903
  13. DOXYCYCLINE [Concomitant]
     Indication: UPPER RESPIRATORY TRACT INFECTION
     Route: 048
     Dates: start: 20071020, end: 20071024
  14. PAPASE [Concomitant]
     Indication: PROPHYLAXIS
     Route: 048
     Dates: start: 20071020, end: 20071024
  15. ACETAMINOPHEN [Concomitant]
     Indication: UPPER RESPIRATORY TRACT INFECTION
     Route: 048
     Dates: start: 20071020, end: 20071024
  16. ACETAMINOPHEN [Concomitant]
     Route: 048
     Dates: start: 20071114, end: 20071114
  17. ZOLEDRONIC ACID [Concomitant]
     Dates: start: 20071114, end: 20071114

REACTIONS (1)
  - PLEURAL EFFUSION [None]
